FAERS Safety Report 15638274 (Version 1)
Quarter: 2018Q4

REPORT INFORMATION
  Report Type: Spontaneous
  Country: US (occurrence: US)
  Receive Date: 20181120
  Receipt Date: 20181120
  Transmission Date: 20190205
  Serious: No
  Sender: FDA-Public Use
  Company Number: US-JNJFOC-20180814087

PATIENT
  Sex: Male

DRUGS (8)
  1. VITAMIN C [Concomitant]
     Active Substance: ASCORBIC ACID
  2. METFORMIN [Concomitant]
     Active Substance: METFORMIN HYDROCHLORIDE
  3. CARVEDILOL. [Concomitant]
     Active Substance: CARVEDILOL
  4. ASPIRIN. [Concomitant]
     Active Substance: ASPIRIN
  5. TOUJEO [Concomitant]
     Active Substance: INSULIN GLARGINE
  6. IMBRUVICA [Suspect]
     Active Substance: IBRUTINIB
     Indication: PRODUCT USED FOR UNKNOWN INDICATION
     Route: 065
     Dates: start: 20180712
  7. LOSARTAN. [Concomitant]
     Active Substance: LOSARTAN
  8. CALCIUM W/MAGNESIUM/ZINC [Concomitant]

REACTIONS (2)
  - Haematuria [Unknown]
  - Back pain [Unknown]

NARRATIVE: CASE EVENT DATE: 2018
